FAERS Safety Report 7982178 (Version 2)
Quarter: 2013Q1

REPORT INFORMATION
  Report Type: Report from Study
  Country: AU (occurrence: AU)
  Receive Date: 20110609
  Receipt Date: 20130313
  Transmission Date: 20140127
  Serious: Yes (Other)
  Sender: FDA-Public Use
  Company Number: PHNR2007AU01991

PATIENT
  Age: 40 Year
  Sex: Female

DRUGS (8)
  1. CLOZARIL [Suspect]
     Indication: SCHIZOPHRENIA
     Dosage: 12.5MG
     Dates: start: 20010612
  2. CLOZARIL [Suspect]
     Dosage: 200 MG,
     Route: 048
     Dates: start: 20010626
  3. CHEMOTHERAPEUTICS NOS [Concomitant]
     Indication: BREAST CANCER
  4. MAXOLON [Concomitant]
  5. HALOPERIDOL [Concomitant]
  6. TROPISETRON [Concomitant]
  7. DEXAMETHASONE [Concomitant]
  8. APREPITANT [Concomitant]

REACTIONS (4)
  - Breast cancer [Unknown]
  - Agranulocytosis [Recovered/Resolved]
  - White blood cell count decreased [Recovered/Resolved]
  - Neutrophil count decreased [Recovered/Resolved]
